FAERS Safety Report 10036536 (Version 2)
Quarter: 2014Q2

REPORT INFORMATION
  Report Type: Report from Study
  Country: US (occurrence: US)
  Receive Date: 20140326
  Receipt Date: 20140425
  Transmission Date: 20141212
  Serious: No
  Sender: FDA-Public Use
  Company Number: US-ROCHE-1367894

PATIENT
  Age: 47 Year
  Sex: Female
  Weight: 52.3 kg

DRUGS (14)
  1. RITUXIMAB [Suspect]
     Indication: NON-HODGKIN^S LYMPHOMA UNSPECIFIED HISTOLOGY INDOLENT
     Route: 042
     Dates: start: 20131101
  2. CYCLOPHOSPHAMIDE [Suspect]
     Indication: NON-HODGKIN^S LYMPHOMA UNSPECIFIED HISTOLOGY INDOLENT
     Route: 042
     Dates: start: 20131101
  3. DOXORUBICIN [Suspect]
     Indication: NON-HODGKIN^S LYMPHOMA UNSPECIFIED HISTOLOGY INDOLENT
     Route: 042
     Dates: start: 20131101
  4. VINCRISTINE [Suspect]
     Indication: NON-HODGKIN^S LYMPHOMA UNSPECIFIED HISTOLOGY INDOLENT
     Route: 042
  5. PREDNISOLONE [Suspect]
     Indication: NON-HODGKIN^S LYMPHOMA UNSPECIFIED HISTOLOGY INDOLENT
     Route: 042
     Dates: start: 20131101
  6. TYLENOL [Concomitant]
     Indication: DISCOMFORT
     Route: 065
     Dates: start: 20131029
  7. ALOXI [Concomitant]
     Route: 065
     Dates: start: 20131101
  8. DEXAMETHASONE [Concomitant]
     Route: 065
     Dates: start: 20131101
  9. PROCHLORPERAZINE MALEATE [Concomitant]
     Route: 065
     Dates: start: 20131122
  10. MEDROL DOSEPAK [Concomitant]
     Route: 065
     Dates: start: 20131118
  11. CLOBETASOL PROPIONATE [Concomitant]
     Indication: RASH MACULO-PAPULAR
     Route: 065
     Dates: start: 20131118
  12. NYSTATIN [Concomitant]
     Indication: MUCOSAL INFLAMMATION
     Route: 065
     Dates: start: 20131122
  13. MICONAZOLE [Concomitant]
     Indication: VAGINAL INFLAMMATION
     Route: 065
     Dates: start: 20131122
  14. NEULASTA [Concomitant]
     Indication: NEUTROPENIA
     Route: 065
     Dates: start: 20131203

REACTIONS (1)
  - Muscular weakness [Not Recovered/Not Resolved]
